FAERS Safety Report 19494722 (Version 1)
Quarter: 2021Q3

REPORT INFORMATION
  Report Type: Spontaneous
  Country: CN (occurrence: CN)
  Receive Date: 20210706
  Receipt Date: 20210706
  Transmission Date: 20211014
  Serious: Yes (Hospitalization, Other)
  Sender: FDA-Public Use
  Company Number: CN-JIANGSU HENGRUI MEDICINE CO., LTD.-2113473

PATIENT
  Age: 46 Year
  Sex: Male
  Weight: 70 kg

DRUGS (5)
  1. THROMBOSIS PROPHYLAXIS [FONDAPARINUX SODIUM] [Suspect]
     Active Substance: FONDAPARINUX SODIUM
     Route: 041
     Dates: start: 20210521, end: 20210610
  2. ESCIN SODIUM [Suspect]
     Active Substance: SODIUM ESCINATE
     Route: 048
     Dates: start: 20210521, end: 20210617
  3. FONDAPARINUX SODIUM. [Suspect]
     Active Substance: FONDAPARINUX SODIUM
     Indication: THROMBOSIS PROPHYLAXIS
     Route: 050
     Dates: start: 20210521, end: 20210605
  4. CEFATHIAMIDINE [Suspect]
     Active Substance: CEFTRIAXONE SODIUM
     Route: 041
     Dates: start: 20210521, end: 20210610
  5. AMINO ACIDS NOS, FATS NOS, GLUCOSE [Suspect]
     Active Substance: AMINO ACIDS\DEXTROSE\SOYBEAN OIL
     Route: 041
     Dates: start: 20210521, end: 20210610

REACTIONS (4)
  - Abdominal pain [Recovering/Resolving]
  - Vomiting [Recovering/Resolving]
  - Diarrhoea [Recovering/Resolving]
  - Liver injury [Recovering/Resolving]

NARRATIVE: CASE EVENT DATE: 20210601
